FAERS Safety Report 10242039 (Version 4)
Quarter: 2015Q4

REPORT INFORMATION
  Report Type: Spontaneous
  Country: US (occurrence: US)
  Receive Date: 20140617
  Receipt Date: 20151229
  Transmission Date: 20160304
  Serious: Yes (Hospitalization, Other)
  Sender: FDA-Public Use
  Company Number: PHHY2012US101990

PATIENT
  Sex: Female

DRUGS (14)
  1. OMEPRAZOLE. [Suspect]
     Active Substance: OMEPRAZOLE
     Indication: PRODUCT USED FOR UNKNOWN INDICATION
     Dosage: 1 DF, QD BEFORE A MEAL
     Route: 048
  2. BENZTROPINE [Suspect]
     Active Substance: BENZTROPINE
     Indication: PRODUCT USED FOR UNKNOWN INDICATION
     Dosage: 1 DF, BID
     Route: 048
     Dates: start: 20140814
  3. LIORESAL [Suspect]
     Active Substance: BACLOFEN
     Dosage: 300 UG / DAY
     Route: 037
  4. COMPAZINE [Suspect]
     Active Substance: PROCHLORPERAZINE MALEATE
     Indication: NAUSEA
     Dosage: 1 DF, Q4H
     Route: 048
  5. LIORESAL [Suspect]
     Active Substance: BACLOFEN
     Indication: MUSCLE SPASTICITY
     Dosage: 400 UKN, UNK
     Route: 037
  6. BACLOFEN INTRATHECAL [Suspect]
     Active Substance: BACLOFEN
     Indication: MUSCLE SPASTICITY
     Dosage: 300 UG, QD
     Route: 037
     Dates: start: 20151119
  7. ZOFRAN [Suspect]
     Active Substance: ONDANSETRON HYDROCHLORIDE
     Indication: NAUSEA
     Dosage: 1 DF, Q8H
     Route: 048
     Dates: start: 20151117
  8. LIORESAL [Suspect]
     Active Substance: BACLOFEN
     Dosage: 150 UG / DAY
     Route: 037
  9. BACLOFEN INTRATHECAL [Suspect]
     Active Substance: BACLOFEN
     Indication: CEREBRAL PALSY
     Dosage: UNK
     Route: 037
     Dates: start: 20131002
  10. DIAZEPAM. [Suspect]
     Active Substance: DIAZEPAM
     Indication: MUSCLE SPASMS
     Dosage: 5 TO10 ML PEG TWICE DAY
     Route: 048
     Dates: start: 20151119
  11. TIZANIDINE. [Suspect]
     Active Substance: TIZANIDINE
     Indication: PRODUCT USED FOR UNKNOWN INDICATION
     Dosage: UNK UKN, UNK
     Route: 065
  12. TRAMADOL. [Suspect]
     Active Substance: TRAMADOL
     Indication: PRODUCT USED FOR UNKNOWN INDICATION
     Dosage: 1 DF, Q6H
     Route: 048
  13. TRAZODONE [Suspect]
     Active Substance: TRAZODONE HYDROCHLORIDE
     Indication: PRODUCT USED FOR UNKNOWN INDICATION
     Dosage: 1 DF, QD AT BEDTIME
     Route: 048
     Dates: start: 20120228
  14. COMPAZINE [Suspect]
     Active Substance: PROCHLORPERAZINE MALEATE
     Indication: VOMITING

REACTIONS (20)
  - Therapeutic response decreased [Unknown]
  - Performance status decreased [Unknown]
  - Muscle contracture [Unknown]
  - Weight decreased [Unknown]
  - Coma [Unknown]
  - Arthralgia [Unknown]
  - Peroneal nerve palsy [Unknown]
  - Overdose [Unknown]
  - Back pain [Unknown]
  - Respiratory depression [Recovered/Resolved]
  - Dyspnoea [Recovered/Resolved]
  - Insomnia [Recovered/Resolved]
  - Vomiting [Unknown]
  - Muscle spasticity [Recovered/Resolved]
  - Fall [Unknown]
  - Hypotonia [Recovered/Resolved]
  - Sedation [Unknown]
  - Medical device site fibrosis [Unknown]
  - Muscle tightness [Recovered/Resolved]
  - Muscle spasms [Recovered/Resolved]
